FAERS Safety Report 6449800-7 (Version None)
Quarter: 2009Q4

REPORT INFORMATION
  Report Type: 
  Country: None (occurrence: None)
  Receive Date: 20091120
  Receipt Date: 20091104
  Transmission Date: 20100525
  Serious: Yes (Hospitalization)
  Sender: FDA-Public Use
  Company Number: US-GENENTECH-293748

PATIENT
  Age: 67 Year
  Sex: Male

DRUGS (3)
  1. BEVACIZUMAB [Suspect]
     Indication: GASTRIC CANCER
     Dosage: 1100 MG, Q3W
     Route: 042
     Dates: start: 20080917, end: 20091021
  2. CAPECITABINE [Suspect]
     Indication: GASTRIC CANCER
     Dosage: 1000 MG, UNK
     Route: 065
     Dates: start: 20080917
  3. COUMADIN [Concomitant]
     Indication: DRUG USE FOR UNKNOWN INDICATION

REACTIONS (2)
  - DUODENAL ULCER [None]
  - GASTROINTESTINAL HAEMORRHAGE [None]
